FAERS Safety Report 14203628 (Version 2)
Quarter: 2018Q2

REPORT INFORMATION
  Report Type: Spontaneous
  Country: FR (occurrence: FR)
  Receive Date: 20171120
  Receipt Date: 20180405
  Transmission Date: 20180711
  Serious: Yes (Other)
  Sender: FDA-Public Use
  Company Number: FR-MERCK KGAA-2034633

PATIENT
  Age: 68 Year
  Sex: Female
  Weight: 85 kg

DRUGS (4)
  1. NOVOTHYROX [Suspect]
     Active Substance: LEVOTHYROXINE SODIUM
     Indication: HYPOTHYROIDISM
     Route: 048
     Dates: start: 20170518, end: 201711
  2. LODOZ (BISELECT) [Concomitant]
  3. TAHOR [Concomitant]
     Active Substance: ATORVASTATIN CALCIUM
  4. DIAMICRON [Concomitant]
     Active Substance: GLICLAZIDE

REACTIONS (6)
  - Fatigue [Recovering/Resolving]
  - Depression [Not Recovered/Not Resolved]
  - Muscle spasms [Recovering/Resolving]
  - Visual impairment [Recovering/Resolving]
  - Dizziness [Recovering/Resolving]
  - Insomnia [Recovering/Resolving]

NARRATIVE: CASE EVENT DATE: 20170601
